FAERS Safety Report 16398400 (Version 1)
Quarter: 2019Q2

REPORT INFORMATION
  Report Type: Spontaneous
  Country: GB (occurrence: GB)
  Receive Date: 20190606
  Receipt Date: 20190606
  Transmission Date: 20190711
  Serious: Yes (Other)
  Sender: FDA-Public Use
  Company Number: GB-PFIZER INC-2019235324

PATIENT
  Age: 71 Year
  Sex: Male
  Weight: 105 kg

DRUGS (7)
  1. AMLODIPINE BESILATE [Suspect]
     Active Substance: AMLODIPINE BESYLATE
     Dosage: 5 MG, 1X/DAY
     Dates: start: 20190311
  2. FLUTICASONE. [Concomitant]
     Active Substance: FLUTICASONE
     Dosage: 4 DF, 1X/DAY
     Route: 055
     Dates: start: 20180706, end: 20190327
  3. ATORVASTATIN [Concomitant]
     Active Substance: ATORVASTATIN
     Dosage: 1 DF, 1X/DAY
     Dates: start: 20181026
  4. RAMIPRIL. [Concomitant]
     Active Substance: RAMIPRIL
     Dosage: 1 DF, 1X/DAY
     Dates: start: 20190429
  5. SALBUTAMOL [Concomitant]
     Active Substance: ALBUTEROL
     Dosage: 2 DF, UNK
     Route: 055
     Dates: start: 20180706
  6. SEREFLO [Concomitant]
     Active Substance: FLUTICASONE PROPIONATE\SALMETEROL XINAFOATE
     Dosage: 4 DF, 1X/DAY
     Route: 055
     Dates: start: 20190327
  7. LEVOTHYROXINE. [Concomitant]
     Active Substance: LEVOTHYROXINE
     Dosage: 1 DF, 1X/DAY(EACH MORNING)
     Dates: start: 20180706

REACTIONS (3)
  - Vision blurred [Recovered/Resolved]
  - Lethargy [Unknown]
  - Myalgia [Unknown]

NARRATIVE: CASE EVENT DATE: 20190429
